FAERS Safety Report 9145893 (Version 2)
Quarter: 2013Q1

REPORT INFORMATION
  Report Type: Spontaneous
  Country: BD (occurrence: BD)
  Receive Date: 20130307
  Receipt Date: 20130308
  Transmission Date: 20140127
  Serious: Yes (Death)
  Sender: FDA-Public Use
  Company Number: PHHY2013BD022091

PATIENT
  Age: 75 Year
  Sex: Male

DRUGS (2)
  1. EXELON PATCH [Suspect]
     Indication: DEMENTIA
     Dosage: 4.6 MG, PER DAY
     Route: 062
     Dates: start: 200906, end: 201006
  2. EXELON [Suspect]
     Indication: DEMENTIA
     Dosage: 3 MG, DAILY
     Route: 048
     Dates: start: 201201, end: 201205

REACTIONS (2)
  - CSF test abnormal [Fatal]
  - Nervous system disorder [Not Recovered/Not Resolved]
